FAERS Safety Report 11910738 (Version 3)
Quarter: 2016Q1

REPORT INFORMATION
  Report Type: Report from Study
  Country: US (occurrence: US)
  Receive Date: 20160112
  Receipt Date: 20160211
  Transmission Date: 20160526
  Serious: Yes (Hospitalization, Other)
  Sender: FDA-Public Use
  Company Number: US-BAYER-2015-494188

PATIENT
  Age: 75 Year
  Sex: Male
  Weight: 117.2 kg

DRUGS (7)
  1. ADEMPAS [Suspect]
     Active Substance: RIOCIGUAT
     Indication: PULMONARY HYPERTENSION
     Dosage: 1 MG, TID (LAST SHIPPED 21-DEC-2015)
     Route: 048
  2. ADEMPAS [Suspect]
     Active Substance: RIOCIGUAT
     Indication: PULMONARY HYPERTENSION
     Dosage: 1 MG, TID
     Route: 048
  3. LOSARTAN. [Concomitant]
     Active Substance: LOSARTAN
  4. WARFARIN [Concomitant]
     Active Substance: WARFARIN
  5. LASIX [Concomitant]
     Active Substance: FUROSEMIDE
  6. COUMADIN [Concomitant]
     Active Substance: WARFARIN SODIUM
  7. ADEMPAS [Suspect]
     Active Substance: RIOCIGUAT
     Indication: PULMONARY HYPERTENSION
     Dosage: 0.5 MG, TID (LAST SHIPPED 20-NOV-2015)
     Route: 048
     Dates: start: 20151120

REACTIONS (7)
  - Weight increased [Recovering/Resolving]
  - Blood pressure decreased [Recovered/Resolved]
  - Fluid retention [Unknown]
  - Dizziness postural [Recovering/Resolving]
  - Constipation [Unknown]
  - Dyspnoea [Recovered/Resolved]
  - Hypovolaemia [None]

NARRATIVE: CASE EVENT DATE: 201512
